FAERS Safety Report 25125285 (Version 1)
Quarter: 2025Q1

REPORT INFORMATION
  Report Type: Spontaneous
  Country: AU (occurrence: AU)
  Receive Date: 20250326
  Receipt Date: 20250326
  Transmission Date: 20250409
  Serious: Yes (Other)
  Sender: TEVA
  Company Number: AU-TEVA-VS-3312617

PATIENT
  Age: 32 Year

DRUGS (1)
  1. METHYLPHENIDATE [Suspect]
     Active Substance: METHYLPHENIDATE
     Indication: Product used for unknown indication
     Route: 065

REACTIONS (5)
  - Syncope [Unknown]
  - Drug ineffective [Unknown]
  - Off label use [Unknown]
  - Product availability issue [Unknown]
  - Tachycardia [Unknown]
